FAERS Safety Report 11347994 (Version 1)
Quarter: 2015Q3

REPORT INFORMATION
  Report Type: Spontaneous
  Country: US (occurrence: US)
  Receive Date: 20150803
  Receipt Date: 20150803
  Transmission Date: 20151125
  Serious: No
  Sender: FDA-Public Use
  Company Number: US-ELI_LILLY_AND_COMPANY-US201201005305

PATIENT
  Sex: Male

DRUGS (3)
  1. AMINO ACIDS NOS [Concomitant]
  2. DL-PHENYLALANINE [Concomitant]
     Active Substance: PHENYLALANINE, DL-
  3. ZYPREXA [Suspect]
     Active Substance: OLANZAPINE
     Dosage: 10 MG, QD

REACTIONS (1)
  - Drug interaction [Unknown]
